FAERS Safety Report 4275914-6 (Version None)
Quarter: 2004Q1

REPORT INFORMATION
  Report Type: 
  Country: None (occurrence: None)
  Receive Date: 20040121
  Receipt Date: 20030305
  Transmission Date: 20041129
  Serious: No
  Sender: FDA-Public Use
  Company Number: US-GLAXOSMITHKLINE-A0399073A

PATIENT
  Sex: Female

DRUGS (2)
  1. VALTREX [Suspect]
     Route: 048
  2. METHOTREXATE [Concomitant]
     Dosage: 5MG WEEKLY

REACTIONS (2)
  - DRUG INTERACTION [None]
  - UNEXPECTED THERAPEUTIC DRUG EFFECT [None]
